FAERS Safety Report 7801580-6 (Version None)
Quarter: 2011Q4

REPORT INFORMATION
  Report Type: 
  Country: None (occurrence: None)
  Receive Date: 20111007
  Receipt Date: 20110929
  Transmission Date: 20120403
  Serious: Yes (Death)
  Sender: FDA-Public Use
  Company Number: TR-CELGENEUS-161-21880-11093698

PATIENT
  Sex: Female
  Weight: 64 kg

DRUGS (1)
  1. REVLIMID [Suspect]
     Indication: MYELODYSPLASTIC SYNDROME
     Dosage: 10 MILLIGRAM
     Route: 048
     Dates: start: 20110623, end: 20110727

REACTIONS (2)
  - SEPSIS [None]
  - POST PROCEDURAL HAEMORRHAGE [None]
